FAERS Safety Report 7057440-4 (Version None)
Quarter: 2010Q4

REPORT INFORMATION
  Report Type: 
  Country: None (occurrence: None)
  Receive Date: 20101022
  Receipt Date: 20101013
  Transmission Date: 20110411
  Serious: Yes (Other)
  Sender: FDA-Public Use
  Company Number: US-JNJFOC-20100902347

PATIENT
  Sex: Female

DRUGS (7)
  1. STELARA [Suspect]
     Indication: PSORIASIS
     Route: 058
  2. STELARA [Suspect]
     Route: 058
  3. STELARA [Suspect]
     Route: 058
  4. STELARA [Suspect]
     Route: 058
  5. STELARA [Suspect]
     Route: 058
  6. NORVASC [Concomitant]
  7. DIOVAN [Concomitant]

REACTIONS (2)
  - EOSINOPHIL COUNT INCREASED [None]
  - PSORIASIS [None]
